FAERS Safety Report 23506572 (Version 1)
Quarter: 2024Q1

REPORT INFORMATION
  Report Type: Spontaneous
  Country: US (occurrence: US)
  Receive Date: 20240209
  Receipt Date: 20240209
  Transmission Date: 20240409
  Serious: No
  Sender: FDA-Public Use
  Company Number: US-ASTELLAS-2023US035907

PATIENT
  Age: 80 Year
  Sex: Female

DRUGS (10)
  1. IZERVAY [Suspect]
     Active Substance: AVACINCAPTAD PEGOL SODIUM
     Indication: Dry age-related macular degeneration
     Dosage: UNK UNK, MONTHLY (ONCE A MONTH)
     Route: 031
     Dates: start: 20231031
  2. IZERVAY [Suspect]
     Active Substance: AVACINCAPTAD PEGOL SODIUM
     Indication: Dry age-related macular degeneration
     Dosage: UNK UNK, MONTHLY (ONCE A MONTH)
     Route: 031
     Dates: start: 20231031
  3. IZERVAY [Suspect]
     Active Substance: AVACINCAPTAD PEGOL SODIUM
     Indication: Dry age-related macular degeneration
     Dosage: UNK UNK, MONTHLY (ONCE A MONTH)
     Route: 031
     Dates: start: 20231031
  4. IZERVAY [Suspect]
     Active Substance: AVACINCAPTAD PEGOL SODIUM
     Indication: Dry age-related macular degeneration
     Dosage: UNK UNK, MONTHLY (ONCE A MONTH)
     Route: 031
     Dates: start: 20231031
  5. IZERVAY [Suspect]
     Active Substance: AVACINCAPTAD PEGOL SODIUM
     Indication: Dry age-related macular degeneration
     Dosage: UNK UNK, MONTHLY (ONCE A MONTH)
     Route: 031
     Dates: start: 20231031
  6. IZERVAY [Suspect]
     Active Substance: AVACINCAPTAD PEGOL SODIUM
     Dosage: UNK UNK, MONTHLY (ONCE A MONTH)
     Route: 031
     Dates: start: 20231128
  7. IZERVAY [Suspect]
     Active Substance: AVACINCAPTAD PEGOL SODIUM
     Dosage: UNK UNK, MONTHLY (ONCE A MONTH)
     Route: 031
     Dates: start: 20231128
  8. IZERVAY [Suspect]
     Active Substance: AVACINCAPTAD PEGOL SODIUM
     Dosage: UNK UNK, MONTHLY (ONCE A MONTH)
     Route: 031
     Dates: start: 20231128
  9. IZERVAY [Suspect]
     Active Substance: AVACINCAPTAD PEGOL SODIUM
     Dosage: UNK UNK, MONTHLY (ONCE A MONTH)
     Route: 031
     Dates: start: 20231128
  10. IZERVAY [Suspect]
     Active Substance: AVACINCAPTAD PEGOL SODIUM
     Dosage: UNK UNK, MONTHLY (ONCE A MONTH)
     Route: 031
     Dates: start: 20231128

REACTIONS (1)
  - Eye irritation [Unknown]

NARRATIVE: CASE EVENT DATE: 20231031
